FAERS Safety Report 5244088-7 (Version None)
Quarter: 2007Q1

REPORT INFORMATION
  Report Type: 
  Country: None (occurrence: None)
  Receive Date: 20061201
  Receipt Date: 20060816
  Transmission Date: 20070707
  Serious: No
  Sender: FDA-Public Use
  Company Number: 2006PV019617

PATIENT
  Age: 60 Year
  Sex: Female
  Weight: 80.2867 kg

DRUGS (3)
  1. BYETTA [Suspect]
     Indication: DIABETES MELLITUS NON-INSULIN-DEPENDENT
     Dosage: 5 MCG;BID;SC
     Route: 058
     Dates: start: 20060815
  2. METOPROLOL SUCCINATE [Suspect]
     Dates: start: 20040101
  3. HUMULIN 70/30 [Concomitant]

REACTIONS (5)
  - BLOOD GLUCOSE INCREASED [None]
  - DRUG INEFFECTIVE [None]
  - HYPERTENSION [None]
  - URTICARIA GENERALISED [None]
  - WEIGHT DECREASED [None]
